FAERS Safety Report 17646977 (Version 2)
Quarter: 2020Q2

REPORT INFORMATION
  Report Type: Spontaneous
  Country: GB (occurrence: GB)
  Receive Date: 20200408
  Receipt Date: 20200414
  Transmission Date: 20200713
  Serious: Yes (Life-Threatening)
  Sender: FDA-Public Use
  Company Number: NVSC2020GB095014

PATIENT
  Sex: Female

DRUGS (2)
  1. DELTACORTRIL [Suspect]
     Active Substance: PREDNISOLONE
     Indication: PRODUCT USED FOR UNKNOWN INDICATION
     Dosage: 2 DF, QD (5 MG (2 TABLETS) ONCE DAILY)
     Route: 065
  2. REVOLADE [Suspect]
     Active Substance: ELTROMBOPAG
     Indication: IMMUNE THROMBOCYTOPENIA
     Dosage: UNK (USED FOR LAST 2 WEEKSUSED FOR LAST 2 WEEKSUSED FOR LAST 2 WEEKSUSED FOR LAST 2 WEEKSUSED FOR LA
     Route: 065

REACTIONS (1)
  - Petechiae [Unknown]
